FAERS Safety Report 14210479 (Version 2)
Quarter: 2018Q1

REPORT INFORMATION
  Report Type: Spontaneous
  Country: AR (occurrence: AR)
  Receive Date: 20171121
  Receipt Date: 20180215
  Transmission Date: 20180508
  Serious: Yes (Hospitalization)
  Sender: FDA-Public Use
  Company Number: AR-GLAXOSMITHKLINE-AR2017GSK177567

PATIENT
  Age: 38 Year
  Sex: Female

DRUGS (1)
  1. BENLYSTA [Suspect]
     Active Substance: BELIMUMAB
     Indication: UNDIFFERENTIATED CONNECTIVE TISSUE DISEASE
     Dosage: 640 MG, UNK
     Dates: start: 20171115

REACTIONS (2)
  - Off label use [Unknown]
  - Bronchospasm [Unknown]

NARRATIVE: CASE EVENT DATE: 20171115
